FAERS Safety Report 25202281 (Version 1)
Quarter: 2025Q2

REPORT INFORMATION
  Report Type: Spontaneous
  Country: US (occurrence: US)
  Receive Date: 20250416
  Receipt Date: 20250416
  Transmission Date: 20250716
  Serious: Yes (Hospitalization)
  Sender: PHARMACOSMOS
  Company Number: US-NEBO-692982

PATIENT
  Sex: Female

DRUGS (1)
  1. MONOFERRIC [Suspect]
     Active Substance: FERRIC DERISOMALTOSE
     Indication: Product used for unknown indication
     Dates: start: 2024, end: 2024

REACTIONS (3)
  - Dyspnoea [Unknown]
  - Pruritus [Unknown]
  - Circumoral oedema [Unknown]

NARRATIVE: CASE EVENT DATE: 20240101
